FAERS Safety Report 5242818-1 (Version None)
Quarter: 2007Q1

REPORT INFORMATION
  Report Type: 
  Country: None (occurrence: None)
  Receive Date: 20070221
  Receipt Date: 20070221
  Transmission Date: 20070707
  Serious: Yes (Other)
  Sender: FDA-Public Use
  Company Number: US-GLAXOSMITHKLINE-A0640204A

PATIENT
  Age: 22 Year
  Sex: Female

DRUGS (1)
  1. NICODERM CQ [Suspect]
     Dosage: 21MG UNKNOWN
     Route: 062
     Dates: start: 20070101

REACTIONS (6)
  - DIZZINESS [None]
  - HYPOAESTHESIA [None]
  - LOSS OF CONSCIOUSNESS [None]
  - MALAISE [None]
  - TREMOR [None]
  - VOMITING [None]
